FAERS Safety Report 9019510 (Version 1)
Quarter: 2013Q1

REPORT INFORMATION
  Report Type: Spontaneous
  Country: US (occurrence: US)
  Receive Date: 20130118
  Receipt Date: 20130118
  Transmission Date: 20140127
  Serious: Yes (Hospitalization)
  Sender: FDA-Public Use
  Company Number: US-JNJFOC-20130106749

PATIENT
  Age: 65 None
  Sex: Female
  Weight: 65.77 kg

DRUGS (3)
  1. DURAGESIC [Suspect]
     Indication: OSTEOARTHRITIS
     Route: 062
     Dates: start: 201208
  2. ZYRTEC [Suspect]
     Route: 065
  3. ZYRTEC [Suspect]
     Indication: PRODUCT USED FOR UNKNOWN INDICATION
     Route: 065

REACTIONS (2)
  - Convulsion [Unknown]
  - Analgesic drug level below therapeutic [None]
